FAERS Safety Report 7626920-2 (Version None)
Quarter: 2011Q3

REPORT INFORMATION
  Report Type: 
  Country: None (occurrence: None)
  Receive Date: 20110701
  Receipt Date: 20100526
  Transmission Date: 20111222
  Serious: Yes (Other)
  Sender: FDA-Public Use
  Company Number: 7004604

PATIENT
  Age: 32 Year
  Sex: Female
  Weight: 58 kg

DRUGS (2)
  1. REBIF [Suspect]
     Indication: MULTIPLE SCLEROSIS
     Dosage: 0.8, 3 IN 1 WK, SUBCUTANEOUS
     Route: 058
     Dates: start: 20091207, end: 20100503
  2. LAMICTAL [Concomitant]

REACTIONS (1)
  - GRAND MAL CONVULSION [None]
